FAERS Safety Report 13537313 (Version 4)
Quarter: 2017Q3

REPORT INFORMATION
  Report Type: Spontaneous
  Country: KR (occurrence: KR)
  Receive Date: 20170511
  Receipt Date: 20170824
  Transmission Date: 20171127
  Serious: Yes (Other)
  Sender: FDA-Public Use
  Company Number: KR-009507513-1705KOR005621

PATIENT
  Age: 62 Year
  Sex: Male

DRUGS (46)
  1. ALIMTA [Concomitant]
     Active Substance: PEMETREXED DISODIUM
     Dosage: 850 MG, ONCE, CYCLE 1
     Route: 042
     Dates: start: 20161102, end: 20161102
  2. CISPLATIN. [Concomitant]
     Active Substance: CISPLATIN
     Dosage: 128 MG, ONCE, CYCLE 1, STRENGTH: 50MG/100ML
     Route: 042
     Dates: start: 20161102, end: 20161102
  3. DEXAMETHASONE SODIUM PHOSPHATE. [Concomitant]
     Active Substance: DEXAMETHASONE SODIUM PHOSPHATE
     Indication: PROPHYLAXIS
     Dosage: 8 MG, ONCE
     Route: 042
     Dates: start: 20161124, end: 20161124
  4. ALOXI [Concomitant]
     Active Substance: PALONOSETRON HYDROCHLORIDE
     Indication: PREMEDICATION
     Dosage: 0.25 MG, ONCE
     Route: 042
     Dates: start: 20161123, end: 20161123
  5. GALVUS [Concomitant]
     Active Substance: VILDAGLIPTIN
     Indication: DIABETES MELLITUS
     Dosage: 1 TABLET (50 MG), BID
     Route: 048
  6. EMEND (FOSAPREPITANT DIMEGLUMINE) [Suspect]
     Active Substance: FOSAPREPITANT DIMEGLUMINE
     Dosage: 150 MG, ONCE
     Route: 042
     Dates: start: 20161123, end: 20161123
  7. DEXAMETHASONE. [Concomitant]
     Active Substance: DEXAMETHASONE
     Dosage: 8 MG, ONCE
     Route: 048
     Dates: start: 20170104, end: 20170104
  8. GLUPA [Concomitant]
     Active Substance: METFORMIN HYDROCHLORIDE
     Indication: DIABETES MELLITUS
     Dosage: 1 TABLET (850 MG), BID
     Route: 048
  9. ULCERLMIN [Concomitant]
     Active Substance: SUCRALFATE
     Indication: GASTRIC ULCER
     Dosage: 1 PK, TID; STRENGTH: 1G/15 ML
     Route: 048
  10. ALMAGEL F [Concomitant]
     Indication: GASTRIC ULCER
     Dosage: 1 PK, TID
     Route: 048
  11. EMEND (FOSAPREPITANT DIMEGLUMINE) [Suspect]
     Active Substance: FOSAPREPITANT DIMEGLUMINE
     Indication: PROPHYLAXIS OF NAUSEA AND VOMITING
     Dosage: 150 MG, ONCE
     Route: 042
     Dates: start: 20161102, end: 20161102
  12. ALIMTA [Concomitant]
     Active Substance: PEMETREXED DISODIUM
     Dosage: 870 MG, ONCE, CYCLE 3
     Route: 042
     Dates: start: 20161214, end: 20161214
  13. DEXAMETHASONE SODIUM PHOSPHATE. [Concomitant]
     Active Substance: DEXAMETHASONE SODIUM PHOSPHATE
     Indication: PREMEDICATION
     Dosage: 12 MG, ONCE, STRENGTH: 5MG/ML
     Route: 042
     Dates: start: 20161123, end: 20161123
  14. DEXAMETHASONE SODIUM PHOSPHATE. [Concomitant]
     Active Substance: DEXAMETHASONE SODIUM PHOSPHATE
     Dosage: 12 MG, ONCE, STRENGTH: 5MG/ML
     Route: 042
     Dates: start: 20161214, end: 20161214
  15. DEXAMETHASONE. [Concomitant]
     Active Substance: DEXAMETHASONE
     Dosage: 8 MG, ONCE
     Route: 048
     Dates: start: 20161215, end: 20161215
  16. ALOXI [Concomitant]
     Active Substance: PALONOSETRON HYDROCHLORIDE
     Dosage: 0.25 MG, ONCE
     Route: 042
     Dates: start: 20161214, end: 20161214
  17. ALOXI [Concomitant]
     Active Substance: PALONOSETRON HYDROCHLORIDE
     Dosage: 0.25 MG, ONCE
     Route: 042
     Dates: start: 20161102, end: 20161102
  18. LIPITOR [Concomitant]
     Active Substance: ATORVASTATIN CALCIUM
     Indication: HYPERLIPIDAEMIA
     Dosage: 1 TABLET (10 MG), QD
     Route: 048
  19. PANTOLOC [Concomitant]
     Active Substance: PANTOPRAZOLE SODIUM
     Indication: GASTRIC ULCER
     Dosage: 1 TABLET (40 MG), QD
     Route: 048
  20. NEXILEN [Concomitant]
     Indication: GASTRIC ULCER
     Dosage: 1 TABLET, BID
     Route: 048
  21. EMEND (FOSAPREPITANT DIMEGLUMINE) [Suspect]
     Active Substance: FOSAPREPITANT DIMEGLUMINE
     Dosage: 150 MG, ONCE
     Route: 042
     Dates: start: 20161214, end: 20161214
  22. EMEND (FOSAPREPITANT DIMEGLUMINE) [Suspect]
     Active Substance: FOSAPREPITANT DIMEGLUMINE
     Dosage: 150 MG, ONCE
     Route: 042
     Dates: start: 20170103, end: 20170103
  23. APIDRA [Concomitant]
     Active Substance: INSULIN GLULISINE
     Indication: DIABETES MELLITUS
     Dosage: 10 IU, QD
     Route: 058
  24. KALIMATE [Concomitant]
     Active Substance: CALCIUM POLYSTYRENE SULFONATE
     Indication: PROPHYLAXIS
     Dosage: 1 PK, QD
     Route: 048
     Dates: start: 20161101, end: 20161122
  25. STILLEN (CHINESE MUGWORT) [Concomitant]
     Indication: GASTRIC ULCER
     Dosage: 1 TABLET (60 MG), BID
     Route: 048
  26. LAMINA G [Concomitant]
     Active Substance: SODIUM ALGINATE
     Indication: PROPHYLAXIS
     Dosage: 1 PK, TID
     Route: 048
  27. MUCOSTA [Concomitant]
     Active Substance: REBAMIPIDE
     Indication: GASTRIC ULCER
     Dosage: 1 TABLET (100 MG), TID
     Route: 048
  28. LANTUS [Concomitant]
     Active Substance: INSULIN GLARGINE
     Dosage: 1 PEN, QD
     Route: 058
  29. DEXAMETHASONE SODIUM PHOSPHATE. [Concomitant]
     Active Substance: DEXAMETHASONE SODIUM PHOSPHATE
     Dosage: 12 MG, ONCE
     Route: 042
     Dates: start: 20161102, end: 20161102
  30. DEXAMETHASONE SODIUM PHOSPHATE. [Concomitant]
     Active Substance: DEXAMETHASONE SODIUM PHOSPHATE
     Dosage: 8 MG, ONCE
     Route: 042
     Dates: start: 20161103, end: 20161103
  31. FOLIC ACID. [Concomitant]
     Active Substance: FOLIC ACID
     Indication: PROPHYLAXIS
     Dosage: 1 TABLET (1 MG), QD
     Route: 048
  32. TRIFLUSAL [Concomitant]
     Active Substance: TRIFLUSAL
     Indication: PROPHYLAXIS
     Dosage: 1 CAPSULE, BID
     Route: 048
  33. CISPLATIN. [Concomitant]
     Active Substance: CISPLATIN
     Indication: LUNG NEOPLASM MALIGNANT
     Dosage: 129 MG, ONCE, CYCLE 2, STRENGTH: 50MG/100ML
     Route: 042
     Dates: start: 20161123, end: 20161123
  34. CISPLATIN. [Concomitant]
     Active Substance: CISPLATIN
     Dosage: 131 MG, ONCE, CYCLE 4, STRENGTH: 50MG/100ML
     Route: 042
     Dates: start: 20170103, end: 20170103
  35. CIMET [Concomitant]
     Indication: PROPHYLAXIS
     Dosage: 1 TABLET (200 MG), BID
     Route: 048
     Dates: start: 20161104, end: 20170105
  36. ALIMTA [Concomitant]
     Active Substance: PEMETREXED DISODIUM
     Indication: LUNG NEOPLASM MALIGNANT
     Dosage: 860 MG, ONCE, CYCLE 2
     Route: 042
     Dates: start: 20161123, end: 20161123
  37. CISPLATIN. [Concomitant]
     Active Substance: CISPLATIN
     Dosage: 130 MG, ONCE, CYCLE 3, STRENGTH: 50MG/100ML
     Route: 042
     Dates: start: 20161214, end: 20161214
  38. DEXAMETHASONE. [Concomitant]
     Active Substance: DEXAMETHASONE
     Indication: PROPHYLAXIS
     Dosage: 8 MG, BID
     Route: 048
     Dates: start: 20161125, end: 20161126
  39. DEXAMETHASONE. [Concomitant]
     Active Substance: DEXAMETHASONE
     Dosage: 8 MG, BID
     Route: 048
     Dates: start: 20170105, end: 20170106
  40. ALOXI [Concomitant]
     Active Substance: PALONOSETRON HYDROCHLORIDE
     Dosage: 0.25 MG, ONCE
     Route: 042
     Dates: start: 20170103, end: 20170103
  41. HUMULIN R [Concomitant]
     Active Substance: INSULIN HUMAN
     Indication: DIABETES MELLITUS
     Dosage: 20 IU, ONCE
     Route: 042
     Dates: start: 20161122, end: 20161122
  42. ALIMTA [Concomitant]
     Active Substance: PEMETREXED DISODIUM
     Dosage: 875 MG, ONCE, CYCLE 4
     Route: 042
     Dates: start: 20170103, end: 20170103
  43. DEXAMETHASONE SODIUM PHOSPHATE. [Concomitant]
     Active Substance: DEXAMETHASONE SODIUM PHOSPHATE
     Dosage: 12 MG, ONCE, STRENGTH: 5MG/ML
     Route: 042
     Dates: start: 20170103, end: 20170103
  44. DEXAMETHASONE. [Concomitant]
     Active Substance: DEXAMETHASONE
     Dosage: 8 MG, BID
     Route: 048
     Dates: start: 20161216, end: 20161217
  45. DEXAMETHASONE. [Concomitant]
     Active Substance: DEXAMETHASONE
     Dosage: 8 MG, BID
     Route: 048
     Dates: start: 20161104, end: 20161105
  46. APROVEL [Concomitant]
     Active Substance: IRBESARTAN
     Indication: HYPERTENSION
     Dosage: 1 TABLET (150 MG), QD
     Route: 048

REACTIONS (1)
  - Pulmonary embolism [Recovered/Resolved]

NARRATIVE: CASE EVENT DATE: 20161206
